FAERS Safety Report 25905795 (Version 1)
Quarter: 2025Q4

REPORT INFORMATION
  Report Type: Spontaneous
  Country: US (occurrence: None)
  Receive Date: 20251009
  Receipt Date: 20251009
  Transmission Date: 20260118
  Serious: Yes (Hospitalization)
  Sender: FDA-CTU
  Company Number: None

PATIENT
  Age: 63 Year
  Sex: Male

DRUGS (1)
  1. CAPECITABINE [Suspect]
     Active Substance: CAPECITABINE
     Dosage: OTHER FREQUENCY : BID FOR 14 DAYS THEN 7 DAYS ?

REACTIONS (5)
  - Rash [None]
  - Oral mucosal blistering [None]
  - Oesophageal mucosal blister [None]
  - Diarrhoea [None]
  - Neutropenia [None]
